FAERS Safety Report 19202518 (Version 6)
Quarter: 2021Q3

REPORT INFORMATION
  Report Type: Report from Study
  Country: US (occurrence: US)
  Receive Date: 20210430
  Receipt Date: 20210820
  Transmission Date: 20211014
  Serious: Yes (Hospitalization)
  Sender: FDA-Public Use
  Company Number: US-GLAXOSMITHKLINE-US2021GSK092216

PATIENT
  Age: 39 Year
  Sex: Female
  Weight: 70.31 kg

DRUGS (23)
  1. PACLITAXEL. [Suspect]
     Active Substance: PACLITAXEL
     Dosage: UNK
     Route: 048
     Dates: end: 20210430
  2. ZOFRAN TABLET (ONDANSETRON) [Concomitant]
     Indication: NAUSEA
     Dosage: 8 MG, TID AS NEEDED
     Route: 048
  3. ZOFRAN TABLET (ONDANSETRON) [Concomitant]
     Indication: VOMITING
  4. ENCEQUIDAR(HM30181A) [Suspect]
     Active Substance: ENCEQUIDAR MESYLATE MONOHYDRATE
  5. CARBOPLATIN (NON?GSK COMPARATOR) [Suspect]
     Active Substance: CARBOPLATIN
     Indication: BREAST CANCER
     Dosage: 220 MG, Z (Q3WKS)
     Route: 042
     Dates: start: 20210401, end: 20210401
  6. CARBOPLATIN (NON?GSK COMPARATOR) [Suspect]
     Active Substance: CARBOPLATIN
     Dosage: UNK
     Route: 042
     Dates: start: 20210422, end: 20210422
  7. PACLITAXEL. [Suspect]
     Active Substance: PACLITAXEL
     Dosage: UNK
     Route: 048
     Dates: start: 20210506
  8. DOSTARLIMAB [Suspect]
     Active Substance: DOSTARLIMAB
     Dosage: UNK
     Route: 042
     Dates: start: 20210422, end: 20210422
  9. PACLITAXEL. [Suspect]
     Active Substance: PACLITAXEL
     Dosage: 390/15 MG 1 DAILY FOR 3 DAYS
     Route: 048
     Dates: end: 20210626
  10. CLARITINE TABLET (LORATADINE) [Concomitant]
     Dosage: 10 MG, QD
     Route: 048
  11. ENCEQUIDAR(HM30181A) [Suspect]
     Active Substance: ENCEQUIDAR MESYLATE MONOHYDRATE
  12. ENCEQUIDAR(HM30181A) [Suspect]
     Active Substance: ENCEQUIDAR MESYLATE MONOHYDRATE
  13. DOSTARLIMAB [Suspect]
     Active Substance: DOSTARLIMAB
     Indication: BREAST CANCER
     Dosage: 500 MG, Z (Q3WKS)
     Route: 042
     Dates: start: 20210401, end: 20210401
  14. ATIVAN TABLET (LORAZEPAM) [Concomitant]
     Indication: ANXIETY
     Dosage: 1 MG AS NEEDED
     Route: 048
  15. ENCEQUIDAR(HM30181A) [Suspect]
     Active Substance: ENCEQUIDAR MESYLATE MONOHYDRATE
  16. DOSTARLIMAB [Suspect]
     Active Substance: DOSTARLIMAB
     Dosage: 500 MG, Z (Q3WKS)
     Route: 042
     Dates: start: 20210610, end: 20210610
  17. PACLITAXEL. [Suspect]
     Active Substance: PACLITAXEL
     Indication: BREAST CANCER
     Dosage: 390/15 MG, 1 DAILY FOR 3 DAYS AWEEK
     Route: 048
     Dates: start: 20210401
  18. PACLITAXEL. [Suspect]
     Active Substance: PACLITAXEL
     Dosage: UNK
     Route: 048
     Dates: end: 20210501
  19. TRIAMCINOLONE CREAM [Concomitant]
     Active Substance: TRIAMCINOLONE
     Dosage: 1 DF, BID
     Route: 061
  20. ENCEQUIDAR(HM30181A) [Suspect]
     Active Substance: ENCEQUIDAR MESYLATE MONOHYDRATE
  21. CARBOPLATIN (NON?GSK COMPARATOR) [Suspect]
     Active Substance: CARBOPLATIN
     Dosage: 220 MG, Z (Q3 WEEKS)
     Route: 042
     Dates: end: 20210506
  22. PROCHLORPERAZINE TABLET [Concomitant]
     Indication: NAUSEA
     Dosage: 10 MG EVERY 6 HR AS NEEDED
     Route: 048
  23. PROCHLORPERAZINE TABLET [Concomitant]
     Indication: VOMITING

REACTIONS (1)
  - Rash [Recovered/Resolved]

NARRATIVE: CASE EVENT DATE: 20210423
